FAERS Safety Report 7527307-3 (Version None)
Quarter: 2011Q2

REPORT INFORMATION
  Report Type: 
  Country: None (occurrence: None)
  Receive Date: 20110607
  Receipt Date: 20091122
  Transmission Date: 20111010
  Serious: Yes (Death, Other)
  Sender: FDA-Public Use
  Company Number: US-BAYER-200940158NA

PATIENT
  Age: 74 Year
  Sex: Male
  Weight: 71.6 kg

DRUGS (27)
  1. BUMEX [Concomitant]
     Dosage: 1MG TWICE PER DAY
     Dates: start: 20080326
  2. DILANTIN [Concomitant]
     Dosage: 100 MG, TID
     Route: 048
  3. CILOSTAZOL [Concomitant]
     Dosage: 100 MG, BID
     Route: 048
  4. WHOLE BLOOD [Concomitant]
     Dosage: 600 ML, UNK
     Route: 042
     Dates: start: 20071008
  5. IBUPROFEN [Concomitant]
     Dosage: 400 MG, PRN
     Route: 048
  6. VANCOMYCIN [Concomitant]
     Dosage: 1 G, UNK
     Route: 042
     Dates: start: 20071008, end: 20071008
  7. COREG [Concomitant]
     Indication: HEART RATE ABNORMAL
  8. NORVASC [Concomitant]
     Dosage: 10 MG, QD
     Route: 048
  9. ACETYLSALICYLIC ACID SRT [Concomitant]
     Dosage: 81 MG, UNK
     Route: 048
  10. DOPAMINE HCL [Concomitant]
     Dosage: UNK
     Dates: start: 20071008, end: 20071008
  11. TRASYLOL [Suspect]
     Indication: AORTIC SURGERY
     Dosage: 25 ML PER HOUR
     Route: 042
     Dates: start: 20071009, end: 20071009
  12. TRASYLOL [Suspect]
     Indication: CORONARY ARTERY BYPASS
     Dosage: UNK
     Route: 042
     Dates: start: 20071008
  13. NEOSYNEPHRINE [Concomitant]
     Dosage: UNK
     Dates: start: 20080320
  14. DIOVAN [Concomitant]
     Dosage: 320 MG, QD
     Route: 048
  15. PHENOBARBITAL TAB [Concomitant]
     Dosage: 32.4 MG FOUR TIME DAYS
     Route: 048
  16. AMIODARONE HCL [Concomitant]
     Dosage: UNK
     Route: 042
     Dates: start: 20071008, end: 20071008
  17. PLATELETS [Concomitant]
     Dosage: 2 U, ONCE
     Route: 042
     Dates: start: 20071008
  18. EPINEPHRINE [Concomitant]
     Dosage: UNK
     Route: 042
     Dates: start: 20071008, end: 20071008
  19. KANAMYCIN [Concomitant]
     Dosage: TO STERILE FIELD
     Dates: start: 20071008, end: 20071008
  20. LEVOPHED [Concomitant]
     Dosage: UNK
     Dates: start: 20080326
  21. PLAVIX [Concomitant]
     Dosage: 75 MG, UNK
     Route: 048
  22. NAPROXEN [Concomitant]
     Dosage: 375 MG, BID
     Route: 048
  23. ANCEF [Concomitant]
     Dosage: 1 G, UNK
     Route: 042
     Dates: start: 20071008, end: 20071008
  24. MANNITOL [Concomitant]
     Dosage: UNK
     Dates: start: 20071008, end: 20071008
  25. HYDROCHLOROTHIAZIDE [Concomitant]
     Dosage: 25 MG, QD
     Route: 048
  26. LEVAQUIN [Concomitant]
     Dosage: 500 MG, UNK
     Route: 042
     Dates: start: 20071008, end: 20071008
  27. HEPARIN [Concomitant]
     Dosage: UNK
     Route: 042
     Dates: start: 20071008, end: 20071008

REACTIONS (14)
  - EMOTIONAL DISTRESS [None]
  - UNEVALUABLE EVENT [None]
  - PSYCHIATRIC SYMPTOM [None]
  - DEATH [None]
  - MULTI-ORGAN FAILURE [None]
  - STRESS [None]
  - PAIN [None]
  - ANHEDONIA [None]
  - RENAL IMPAIRMENT [None]
  - RENAL INJURY [None]
  - INJURY [None]
  - RENAL FAILURE [None]
  - ANXIETY [None]
  - FEAR [None]
